FAERS Safety Report 23179181 (Version 1)
Quarter: 2023Q4

REPORT INFORMATION
  Report Type: Spontaneous
  Country: CN (occurrence: CN)
  Receive Date: 20231113
  Receipt Date: 20231113
  Transmission Date: 20240109
  Serious: Yes (Hospitalization)
  Sender: FDA-Public Use
  Company Number: None

PATIENT
  Sex: Female
  Weight: 53 kg

DRUGS (4)
  1. OZEMPIC [Suspect]
     Active Substance: SEMAGLUTIDE
     Indication: Blood glucose abnormal
     Dosage: 1 MG, QW
     Route: 058
     Dates: end: 20230917
  2. METFORMIN HYDROCHLORIDE [Suspect]
     Active Substance: METFORMIN HYDROCHLORIDE
     Indication: Blood glucose abnormal
     Dosage: 0.5 G, QD
     Route: 048
     Dates: end: 20230920
  3. ROSIGLITAZONE TARTRATE [Concomitant]
     Active Substance: ROSIGLITAZONE TARTRATE
     Indication: Blood glucose abnormal
     Dosage: 4 MG, QD
  4. DAPAGLIFLOZIN [Concomitant]
     Active Substance: DAPAGLIFLOZIN
     Indication: Blood glucose abnormal
     Dosage: 10 MG, QD

REACTIONS (1)
  - Decreased appetite [Recovering/Resolving]
